FAERS Safety Report 19039890 (Version 1)
Quarter: 2021Q1

REPORT INFORMATION
  Report Type: Spontaneous
  Country: US (occurrence: US)
  Receive Date: 20210323
  Receipt Date: 20210323
  Transmission Date: 20210420
  Serious: Yes (Other)
  Sender: FDA-Public Use
  Company Number: US-AUROBINDO-AUR-APL-2020-026390

PATIENT
  Age: 22 Year
  Sex: Female
  Weight: 65 kg

DRUGS (2)
  1. CELECOXIB CAPSULES 100 MG [Suspect]
     Active Substance: CELECOXIB
     Indication: PAIN
     Dosage: UNK, TWO TIMES A DAY
     Route: 065
  2. CELECOXIB CAPSULES 100 MG [Suspect]
     Active Substance: CELECOXIB
     Indication: INFLAMMATION

REACTIONS (3)
  - Anaphylactic reaction [Unknown]
  - Urticaria [Unknown]
  - Dyspnoea [Unknown]
